FAERS Safety Report 14566808 (Version 1)
Quarter: 2018Q1

REPORT INFORMATION
  Report Type: Spontaneous
  Country: US (occurrence: US)
  Receive Date: 20180222
  Receipt Date: 20180222
  Transmission Date: 20180509
  Serious: Yes (Other)
  Sender: FDA-Public Use
  Company Number: None

PATIENT
  Age: 16 Year
  Sex: Male
  Weight: 78.75 kg

DRUGS (6)
  1. METHLYPHENIDATE ER [Suspect]
     Active Substance: METHYLPHENIDATE HYDROCHLORIDE
     Indication: ATTENTION DEFICIT/HYPERACTIVITY DISORDER
     Dosage: ?          QUANTITY:1 TABLET(S);?
     Route: 048
     Dates: start: 20170904, end: 20180119
  2. LEVOTHYROXIN [Concomitant]
     Active Substance: LEVOTHYROXINE
  3. CONCERTA [Concomitant]
     Active Substance: METHYLPHENIDATE HYDROCHLORIDE
  4. ABILIFY [Concomitant]
     Active Substance: ARIPIPRAZOLE
  5. ZONISIMIDE [Concomitant]
  6. LITHIUM. [Concomitant]
     Active Substance: LITHIUM

REACTIONS (5)
  - Drug effect incomplete [None]
  - Educational problem [None]
  - Product substitution issue [None]
  - Anger [None]
  - Irritability [None]

NARRATIVE: CASE EVENT DATE: 20170904
